FAERS Safety Report 9355222 (Version 1)
Quarter: 2013Q2

REPORT INFORMATION
  Report Type: Spontaneous
  Country: US (occurrence: US)
  Receive Date: 20130619
  Receipt Date: 20130619
  Transmission Date: 20140414
  Serious: No
  Sender: FDA-Public Use
  Company Number: US-PFIZER INC-2013183008

PATIENT
  Age: 48 Year
  Sex: Female
  Weight: 81.18 kg

DRUGS (2)
  1. LOPID [Suspect]
     Indication: BLOOD CHOLESTEROL INCREASED
     Dosage: 600 MG, TWO TIMES A DAY
     Route: 048
  2. LOPID [Suspect]
     Dosage: 600 MG, ONCE A DAY
     Route: 048

REACTIONS (3)
  - Lower limb fracture [Unknown]
  - Pain [Unknown]
  - Inappropriate schedule of drug administration [Unknown]
